FAERS Safety Report 4329540-0 (Version None)
Quarter: 2004Q1

REPORT INFORMATION
  Report Type: 
  Country: None (occurrence: None)
  Receive Date: 20040329
  Receipt Date: 20040218
  Transmission Date: 20041129
  Serious: No
  Sender: FDA-Public Use
  Company Number: 04P-163-0250581-00

PATIENT
  Age: 51 Year
  Sex: Female
  Weight: 128.8216 kg

DRUGS (19)
  1. HUMIRA [Suspect]
     Indication: RHEUMATOID ARTHRITIS
     Dosage: 40 MG, 1 IN 2 WK, SUBCUTANEOUS
     Route: 058
     Dates: start: 20031001
  2. CLOPIDOGREL BISULFATE [Concomitant]
  3. TOCOPHEROL CONCENTRATE CAP [Concomitant]
  4. FISH OIL [Concomitant]
  5. ASPIRIN [Concomitant]
  6. HYDROXYCHLOROQUINE PHOSPHATE [Concomitant]
  7. COMBIVENT [Concomitant]
  8. SINGULAIR [Concomitant]
  9. SERETIDE MITE [Concomitant]
  10. PREDNISONE [Concomitant]
  11. BUCINDOLOL HYDROCHLORIDE [Concomitant]
  12. ROFECOXIB [Concomitant]
  13. NOVALIN 70/30 [Concomitant]
  14. GLUCOPHAGE [Concomitant]
  15. THEOPHYLLINE [Concomitant]
  16. NIFEDIPINE [Concomitant]
  17. CATAPRESS [Concomitant]
  18. FLUTICASONE PROPIONATE [Concomitant]
  19. OXYGEN [Concomitant]

REACTIONS (2)
  - CONDITION AGGRAVATED [None]
  - ROTATOR CUFF SYNDROME [None]
